FAERS Safety Report 6773278-7 (Version None)
Quarter: 2010Q2

REPORT INFORMATION
  Report Type: 
  Country: None (occurrence: None)
  Receive Date: 20100614
  Receipt Date: 20100601
  Transmission Date: 20101027
  Serious: Yes (Hospitalization, Other)
  Sender: FDA-Public Use
  Company Number: 7006127

PATIENT
  Age: 47 Year
  Sex: Female

DRUGS (1)
  1. REBIF [Suspect]
     Indication: DRUG USE FOR UNKNOWN INDICATION
     Dosage: 44 MCG, 3 IN 1 WK, SUBCUTANEOUS
     Route: 058
     Dates: start: 20100505

REACTIONS (5)
  - FATIGUE [None]
  - LUNG NEOPLASM [None]
  - PLEURISY [None]
  - RASH [None]
  - UNEVALUABLE EVENT [None]
